FAERS Safety Report 5903174-6 (Version None)
Quarter: 2008Q3

REPORT INFORMATION
  Report Type: 
  Country: None (occurrence: None)
  Receive Date: 20080930
  Receipt Date: 20080924
  Transmission Date: 20090109
  Serious: Yes (Other)
  Sender: FDA-Public Use
  Company Number: US-JNJFOC-20080906660

PATIENT
  Sex: Female
  Weight: 62.6 kg

DRUGS (2)
  1. ORTHO EVRA [Suspect]
     Indication: MENSTRUAL DISORDER
     Route: 062
  2. UNSPECIFIED DRUG [Concomitant]
     Indication: WEIGHT DECREASED
     Route: 065

REACTIONS (3)
  - CHEST PAIN [None]
  - DYSPNOEA [None]
  - OFF LABEL USE [None]
